FAERS Safety Report 20375107 (Version 1)
Quarter: 2022Q1

REPORT INFORMATION
  Report Type: Spontaneous
  Country: US (occurrence: None)
  Receive Date: 20220124
  Receipt Date: 20220124
  Transmission Date: 20220423
  Serious: Yes (unspecified)
  Sender: FDA-Public Use
  Company Number: None

PATIENT
  Age: 66 Year
  Sex: Male
  Weight: 126 kg

DRUGS (17)
  1. CLOPIDOGREL [Suspect]
     Active Substance: CLOPIDOGREL BISULFATE
     Indication: Thrombosis prophylaxis
     Dosage: OTHER QUANTITY : 1 TABLET(S);?FREQUENCY : DAILY;?
     Route: 048
     Dates: start: 20211231, end: 20220124
  2. FENOBITRATE [Concomitant]
  3. HYDROCHLOROTHIAZIDE [Concomitant]
  4. METOPROLOL [Concomitant]
  5. ISOSORBIDE MONINETRAATE [Concomitant]
  6. ISOSORBIDE MONINETRAATE [Concomitant]
  7. ISOSORBIDE MONINETRAATE [Concomitant]
  8. ISOSORBIDE MONINETRAATE [Concomitant]
  9. ISOSORBIDE MONINETRAATE [Concomitant]
  10. ISOSORBIDE MONINETRAATE [Concomitant]
  11. ATORVASTATIN [Concomitant]
  12. VENLAFAXINE [Concomitant]
  13. PANTOPRAZOLE SOD [Concomitant]
  14. PRASUGREL [Concomitant]
  15. CPAP [Concomitant]
  16. CRYSTALENS  IMPLANTS [Concomitant]
  17. UROLIFT [Concomitant]

REACTIONS (4)
  - Erythema [None]
  - Pruritus [None]
  - Skin exfoliation [None]
  - Dry skin [None]

NARRATIVE: CASE EVENT DATE: 20220102
